FAERS Safety Report 25185186 (Version 1)
Quarter: 2025Q2

REPORT INFORMATION
  Report Type: Spontaneous
  Country: US (occurrence: US)
  Receive Date: 20250410
  Receipt Date: 20250410
  Transmission Date: 20250716
  Serious: Yes (Other)
  Sender: FOUNDATION CONSUMER HEALTHCARE
  Company Number: US-FOUNDATIONCONSUMERHC-2025-US-016245

PATIENT
  Age: 7 Year
  Sex: Male
  Weight: 21.32 kg

DRUGS (6)
  1. CHILDRENS DIMETAPP COLD AND COUGH [Suspect]
     Active Substance: BROMPHENIRAMINE MALEATE\DEXTROMETHORPHAN HYDROBROMIDE\PHENYLEPHRINE HYDROCHLORIDE
     Indication: Cough
     Route: 048
     Dates: start: 20250326, end: 20250328
  2. DIMETAPP COLD AND COUGH AND DIMETAPP NIGHTTIME COLD AND COUGH [Suspect]
     Active Substance: BROMPHENIRAMINE MALEATE\DEXTROMETHORPHAN HYDROBROMIDE\DIPHENHYDRAMINE HYDROCHLORIDE
     Indication: Cough
     Route: 048
     Dates: start: 20250326, end: 20250328
  3. TYLENOL [Suspect]
     Active Substance: ACETAMINOPHEN
     Dates: start: 20250326, end: 20250327
  4. VITAMINS [Concomitant]
     Active Substance: VITAMINS
  5. Zinc Liquid [Concomitant]
  6. CETIRIZINE [Concomitant]
     Active Substance: CETIRIZINE HYDROCHLORIDE

REACTIONS (11)
  - Seizure [Unknown]
  - Dysarthria [Recovered/Resolved]
  - Intentional product misuse [Recovered/Resolved]
  - Inappropriate schedule of product administration [Recovered/Resolved]
  - Mydriasis [Recovered/Resolved]
  - Lethargy [Recovered/Resolved]
  - Fall [Recovered/Resolved]
  - Abnormal behaviour [Recovered/Resolved]
  - Asthenia [Recovered/Resolved]
  - Gait disturbance [Recovered/Resolved]
  - Pyrexia [Recovered/Resolved]

NARRATIVE: CASE EVENT DATE: 20250328
